FAERS Safety Report 7491770-7 (Version None)
Quarter: 2011Q2

REPORT INFORMATION
  Report Type: 
  Country: None (occurrence: None)
  Receive Date: 20110519
  Receipt Date: 20110509
  Transmission Date: 20111010
  Serious: Yes (Hospitalization, Other)
  Sender: FDA-Public Use
  Company Number: US-BAYER-200937456NA

PATIENT
  Age: 25 Year
  Sex: Female
  Weight: 91 kg

DRUGS (6)
  1. ANTIBIOTICS [Concomitant]
  2. NEXIUM [Concomitant]
     Dates: start: 20040101, end: 20080615
  3. NSAID'S [Concomitant]
  4. YASMIN [Suspect]
     Indication: PRODUCT USED FOR UNKNOWN INDICATION
     Route: 048
     Dates: start: 20010124, end: 20070301
  5. ZYRTEC [Concomitant]
     Dates: start: 20010101, end: 20080615
  6. METOCLOPRAMIDE [Concomitant]
     Dates: start: 20040101, end: 20090615

REACTIONS (6)
  - NAUSEA [None]
  - CHOLECYSTITIS CHRONIC [None]
  - ABDOMINAL PAIN [None]
  - REFLUX GASTRITIS [None]
  - CHOLELITHIASIS [None]
  - CHOLESTEROSIS [None]
